FAERS Safety Report 9378474 (Version 2)
Quarter: 2013Q3

REPORT INFORMATION
  Report Type: Spontaneous
  Country: US (occurrence: US)
  Receive Date: 20130702
  Receipt Date: 20130825
  Transmission Date: 20140515
  Serious: Yes (Hospitalization)
  Sender: FDA-Public Use
  Company Number: US-009507513-1306USA011554

PATIENT
  Age: 79 Year
  Sex: Female

DRUGS (1)
  1. DULERA [Suspect]
     Indication: ASTHMA
     Dosage: 2 DF, BID
     Route: 055
     Dates: start: 201112

REACTIONS (4)
  - Haemorrhoids [Unknown]
  - Fatigue [Unknown]
  - Wrong technique in drug usage process [Unknown]
  - Product quality issue [Unknown]
